FAERS Safety Report 5131471-3 (Version None)
Quarter: 2006Q4

REPORT INFORMATION
  Report Type: 
  Country: None (occurrence: None)
  Receive Date: 20061016
  Receipt Date: 20061010
  Transmission Date: 20070319
  Serious: Yes (Life-Threatening, Hospitalization, Other)
  Sender: FDA-Public Use
  Company Number: HQWYE754103AUG06

PATIENT
  Age: 55 Year
  Sex: Female
  Weight: 77.18 kg

DRUGS (12)
  1. CEFTRIAXONE [Suspect]
     Indication: ABDOMINAL INFECTION
     Dosage: 2 G 1X PER 1 DAY, INTRAVENOUS
     Route: 042
     Dates: start: 20060728, end: 20060729
  2. METRONIDAZOLE [Suspect]
     Indication: ABDOMINAL INFECTION
     Dosage: 500 MG 1X PER 8 HR, INTRAVENOUS
     Route: 042
     Dates: start: 20060728, end: 20060729
  3. POTASSIUM CHLORIDE [Concomitant]
  4. FENTANYL [Concomitant]
  5. LACTATED RINGER'S (CALCIUM CHLORIDE DIHYDRATE/POTASSIUM CHLORIDE/SODIU [Concomitant]
  6. MORPHINE SULFATE [Concomitant]
  7. PHOSPHATES (SODIUM PHOSPHATE/SODIUM PHOSPHATE MONOBASIC) [Concomitant]
  8. DULCOLAX (BIASCODYL) [Concomitant]
  9. LOVENOX [Concomitant]
  10. IPRATROPIUM/ALBUTEROL (IPRATROPIUM/ALBUTEROL) [Concomitant]
  11. ZOFRAN [Concomitant]
  12. PEPCID [Concomitant]

REACTIONS (20)
  - ALPHA HAEMOLYTIC STREPTOCOCCAL INFECTION [None]
  - BACTERIAL CULTURE POSITIVE [None]
  - BLOOD BICARBONATE INCREASED [None]
  - DRUG HYPERSENSITIVITY [None]
  - FATIGUE [None]
  - FLUID IMBALANCE [None]
  - HYPERVOLAEMIA [None]
  - LARYNGEAL OEDEMA [None]
  - LIFE SUPPORT [None]
  - LUNG INFILTRATION [None]
  - OCCULT BLOOD POSITIVE [None]
  - PLEURAL EFFUSION [None]
  - PULMONARY OEDEMA [None]
  - RESPIRATORY DISORDER [None]
  - RESPIRATORY DISTRESS [None]
  - SEPSIS [None]
  - STRIDOR [None]
  - TACHYCARDIA [None]
  - URINE OUTPUT DECREASED [None]
  - WHEEZING [None]
